FAERS Safety Report 18769972 (Version 1)
Quarter: 2021Q1

REPORT INFORMATION
  Report Type: Spontaneous
  Country: DE (occurrence: DE)
  Receive Date: 20210121
  Receipt Date: 20210121
  Transmission Date: 20210419
  Serious: Yes (Hospitalization)
  Sender: FDA-Public Use
  Company Number: DE-MYLANLABS-2021M1003300

PATIENT
  Age: 80 Year
  Sex: Female

DRUGS (12)
  1. URAPIDIL [Concomitant]
     Active Substance: URAPIDIL
     Dosage: 30 MILLIGRAM, BID,30 MG, 1?0?1?0, RETARD?KAPSELN
  2. METOPROLOL. [Concomitant]
     Active Substance: METOPROLOL
     Dosage: 23.75 MILLIGRAM,23.75 MG, 0?0?0.5?0, TABLETTEN
  3. CANDESARTAN. [Concomitant]
     Active Substance: CANDESARTAN
     Dosage: 8 MILLIGRAM, BID,8 MG, 1?0?1?0, TABLETTEN
  4. GLYCOPYRRONIUM;INDACATEROL [Concomitant]
     Active Substance: GLYCOPYRRONIUM\INDACATEROL
     Dosage: UNK UNK, QD(43|85 ?G, 1?0?0?0)
     Route: 055
  5. LEVOTHYROXINUM NATRICUM [Concomitant]
     Dosage: 25 MICROGRAM, QD,25 ?G, 1?0?0?0, TABLETTEN
  6. EDOXABAN [Suspect]
     Active Substance: EDOXABAN TOSYLATE
     Indication: PRODUCT USED FOR UNKNOWN INDICATION
     Dosage: 30 MILLIGRAM, QD,30 MG, 1?0?0?0, TABLETTEN
  7. MIRTAZAPIN [Concomitant]
     Active Substance: MIRTAZAPINE
     Dosage: 30 MILLIGRAM, QD(30 MG, 0?0?0.5?0, TABLET)
  8. AMLODIPIN                          /00972401/ [Concomitant]
     Active Substance: AMLODIPINE BESYLATE
     Dosage: 5 MILLIGRAM, BID,5 MG, 1?0?1?0, TABLETTEN
  9. TORASEMID [Concomitant]
     Active Substance: TORSEMIDE
     Dosage: 10 MILLIGRAM, BID,10 MG, 1?1?0?0, TABLETTEN
  10. CITALOPRAM [Suspect]
     Active Substance: CITALOPRAM HYDROBROMIDE
     Indication: PRODUCT USED FOR UNKNOWN INDICATION
     Dosage: 20 MILLIGRAM,20 MG, 0.5?0?0?0, TABLETTEN
  11. EISEN                              /00023502/ [Concomitant]
     Dosage: 100 MILLIGRAM, QD,100 MG, 1?0?0?0, KAPSELN
  12. PANTOPRAZOL                        /01263201/ [Concomitant]
     Active Substance: PANTOPRAZOLE
     Dosage: 40 MILLIGRAM, QD,40 MG, 1?0?0?0, TABLETTEN

REACTIONS (3)
  - Haematochezia [Recovering/Resolving]
  - Internal haemorrhage [Recovering/Resolving]
  - Anaemia [Recovering/Resolving]
